FAERS Safety Report 12415100 (Version 1)
Quarter: 2016Q2

REPORT INFORMATION
  Report Type: Spontaneous
  Country: FR (occurrence: FR)
  Receive Date: 20160530
  Receipt Date: 20160530
  Transmission Date: 20160815
  Serious: Yes (Other)
  Sender: FDA-Public Use
  Company Number: FR-ROCHE-1765629

PATIENT
  Age: 63 Year
  Sex: Female

DRUGS (16)
  1. CELLCEPT [Suspect]
     Active Substance: MYCOPHENOLATE MOFETIL\MYCOPHENOLATE MOFETIL HYDROCHLORIDE
     Indication: PROPHYLAXIS AGAINST TRANSPLANT REJECTION
     Route: 065
     Dates: start: 20160306
  2. CLAMOXYL (FRANCE) [Concomitant]
     Active Substance: AMOXICILLIN\CLAVULANIC ACID
     Route: 048
  3. FUNGIZONE [Concomitant]
     Active Substance: AMPHOTERICIN B
     Route: 048
  4. MIKICORT [Concomitant]
     Active Substance: BUDESONIDE
     Route: 048
  5. CYMEVAN [Suspect]
     Active Substance: GANCICLOVIR
     Indication: CYTOMEGALOVIRUS INFECTION
     Route: 041
     Dates: start: 20160401, end: 20160430
  6. LOXEN (FRANCE) [Suspect]
     Active Substance: NICARDIPINE HYDROCHLORIDE
     Dosage: LOXEN 5MG/5ML
     Route: 042
     Dates: start: 20160401, end: 20160414
  7. WELLVONE [Concomitant]
     Active Substance: ATOVAQUONE
     Route: 048
  8. VFEND [Concomitant]
     Active Substance: VORICONAZOLE
     Route: 048
  9. LEVOTHYROX [Concomitant]
     Active Substance: LEVOTHYROXINE
     Route: 048
  10. SANDIMMUNE [Suspect]
     Active Substance: CYCLOSPORINE
     Indication: PROPHYLAXIS AGAINST TRANSPLANT REJECTION
     Dosage: DOSAGE AT TIME OF THE FALL
     Route: 041
     Dates: start: 20160306, end: 20160420
  11. SMECTA [Concomitant]
     Active Substance: MONTMORILLONITE
     Route: 048
  12. CHOLURSO [Concomitant]
     Active Substance: URSODIOL
     Route: 048
  13. LOXEN (FRANCE) [Suspect]
     Active Substance: NICARDIPINE HYDROCHLORIDE
     Indication: HYPERTENSION
     Route: 048
     Dates: start: 20160414, end: 20160528
  14. VITABACT [Concomitant]
     Active Substance: PICLOXYDINE DIHYDROCHLORIDE
     Route: 047
  15. SOLU-MEDROL [Suspect]
     Active Substance: METHYLPREDNISOLONE SODIUM SUCCINATE
     Indication: ACUTE GRAFT VERSUS HOST DISEASE
     Route: 041
     Dates: start: 20160325, end: 20160423
  16. TIORFAN [Concomitant]
     Active Substance: RACECADOTRIL
     Route: 048

REACTIONS (1)
  - Fall [Unknown]

NARRATIVE: CASE EVENT DATE: 20160419
